FAERS Safety Report 16387285 (Version 3)
Quarter: 2019Q3

REPORT INFORMATION
  Report Type: Report from Study
  Country: NL (occurrence: NL)
  Receive Date: 20190604
  Receipt Date: 20190711
  Transmission Date: 20191004
  Serious: Yes (Death, Hospitalization)
  Sender: FDA-Public Use
  Company Number: PHHY2018NL090622

PATIENT
  Sex: Female

DRUGS (1)
  1. ZOMETA [Suspect]
     Active Substance: ZOLEDRONIC ACID
     Indication: BREAST CANCER METASTATIC
     Dosage: 1 DF, (4 MG/100 ML), ONCE PER 6 WEEKS
     Route: 042
     Dates: start: 20190418

REACTIONS (6)
  - Pleural effusion [Fatal]
  - Pulmonary oedema [Fatal]
  - Breast cancer metastatic [Fatal]
  - Malignant neoplasm progression [Fatal]
  - Inappropriate schedule of product administration [Unknown]
  - Lung disorder [Fatal]
